FAERS Safety Report 15436599 (Version 3)
Quarter: 2019Q1

REPORT INFORMATION
  Report Type: Spontaneous
  Country: US (occurrence: US)
  Receive Date: 20180927
  Receipt Date: 20190325
  Transmission Date: 20190417
  Serious: Yes (Other)
  Sender: FDA-Public Use
  Company Number: US-MYLANLABS-2018M1068542

PATIENT
  Age: 44 Year
  Sex: Female

DRUGS (6)
  1. LATUDA [Suspect]
     Active Substance: LURASIDONE HYDROCHLORIDE
     Indication: BIPOLAR DISORDER
     Dosage: UNK
  2. PERPHENAZINE. [Suspect]
     Active Substance: PERPHENAZINE
     Indication: PRODUCT USED FOR UNKNOWN INDICATION
     Dosage: 1 DF, AM
  3. LATUDA [Suspect]
     Active Substance: LURASIDONE HYDROCHLORIDE
     Dosage: 2 DF, QD (80 MG, AT BEDTIME)
     Route: 048
     Dates: start: 2018
  4. LATUDA [Suspect]
     Active Substance: LURASIDONE HYDROCHLORIDE
     Dosage: UNK UNK, BID (20 MG IN MORNING AND 80 MG IN NIGHT)
     Route: 048
     Dates: start: 2018
  5. PERPHENAZINE. [Suspect]
     Active Substance: PERPHENAZINE
     Dosage: 2 DF, PM
  6. INVEGA [Concomitant]
     Active Substance: PALIPERIDONE

REACTIONS (11)
  - Tic [Unknown]
  - Cerebral disorder [Unknown]
  - Vision blurred [Unknown]
  - Drug ineffective [Unknown]
  - Bipolar disorder [Unknown]
  - Inner ear disorder [Unknown]
  - Somnolence [Unknown]
  - Dizziness [Unknown]
  - Inappropriate schedule of product administration [Unknown]
  - Restless legs syndrome [Unknown]
  - Restlessness [Unknown]
